FAERS Safety Report 7684166 (Version 3)
Quarter: 2014Q3

REPORT INFORMATION
  Report Type: Spontaneous
  Country: DE (occurrence: DE)
  Receive Date: 20101129
  Receipt Date: 20140729
  Transmission Date: 20150326
  Serious: Yes (Hospitalization)
  Sender: FDA-Public Use
  Company Number: DE-RANBAXY-2009RR-22406

PATIENT
  Age: 76 Year
  Sex: Female

DRUGS (7)
  1. TOREM [Suspect]
     Active Substance: TORSEMIDE
     Indication: HYPERTENSION
     Dosage: 10 MG, BID
     Route: 048
     Dates: start: 20080901, end: 20080908
  2. ASS ^CT-ARSNEIMITTEL^ [Concomitant]
     Indication: PROPHYLAXIS
     Dosage: 150 MG, QD
     Route: 048
     Dates: start: 200606
  3. RAMIPRIL. [Suspect]
     Active Substance: RAMIPRIL
     Indication: HYPERTENSION
     Dosage: 2.5 MG, QD
     Route: 048
     Dates: start: 200606
  4. OMEP [Concomitant]
     Active Substance: OMEPRAZOLE
     Indication: MALLORY-WEISS SYNDROME
     Dosage: 20 MG, QD
     Route: 048
     Dates: start: 20080810
  5. TRIMINEURIN [Concomitant]
     Indication: SLEEP DISORDER THERAPY
     Dosage: 100 MG, QD
     Route: 048
     Dates: start: 200606, end: 20080908
  6. BISOPROLOL [Concomitant]
     Active Substance: BISOPROLOL
     Indication: HYPERTENSION
     Dosage: 2.5 MG, BID
     Route: 048
     Dates: start: 200606
  7. TIAPRIDEX [Concomitant]
     Active Substance: TIAPRIDE
     Indication: TARDIVE DYSKINESIA
     Dosage: UNK
     Route: 048
     Dates: start: 200606

REACTIONS (3)
  - Dehydration [Recovered/Resolved]
  - Syncope [Recovered/Resolved]
  - Drug interaction [Recovered/Resolved]

NARRATIVE: CASE EVENT DATE: 20080908
